FAERS Safety Report 9540402 (Version 1)
Quarter: 2013Q3

REPORT INFORMATION
  Report Type: Spontaneous
  Country: US (occurrence: US)
  Receive Date: 20130920
  Receipt Date: 20130920
  Transmission Date: 20140515
  Serious: Yes (Hospitalization)
  Sender: FDA-Public Use
  Company Number: US-GLAXOSMITHKLINE-A1041743A

PATIENT
  Age: 58 Year
  Sex: Female

DRUGS (11)
  1. IMITREX [Suspect]
     Indication: MIGRAINE
     Dosage: 10MG TWICE PER DAY
     Route: 048
     Dates: start: 201307
  2. ASPIRIN [Suspect]
     Indication: MIGRAINE
     Dosage: 4TAB UNKNOWN
     Route: 048
  3. IMITREX [Suspect]
     Indication: MIGRAINE
     Dosage: 1PUFF SEE DOSAGE TEXT
     Route: 045
     Dates: start: 20130909
  4. UNSPECIFIED MEDICATION [Suspect]
     Indication: PRODUCT USED FOR UNKNOWN INDICATION
     Route: 065
  5. PRILOSEC [Concomitant]
  6. COMPAZINE [Concomitant]
  7. RANITIDINE [Concomitant]
  8. LISINOPRIL [Concomitant]
  9. HYDROXYZINE [Concomitant]
  10. CITALOPRAM [Concomitant]
  11. IRON [Concomitant]

REACTIONS (7)
  - Convulsion [Recovered/Resolved]
  - Drug ineffective [Recovered/Resolved]
  - Labelled drug-disease interaction medication error [Not Recovered/Not Resolved]
  - Blood pressure increased [Recovered/Resolved]
  - Overdose [Recovered/Resolved]
  - Gastric disorder [Not Recovered/Not Resolved]
  - Therapeutic response decreased [Unknown]
